FAERS Safety Report 8478073-9 (Version None)
Quarter: 2012Q2

REPORT INFORMATION
  Report Type: 
  Country: None (occurrence: None)
  Receive Date: 20120622
  Receipt Date: 20120611
  Transmission Date: 20120825
  Serious: Yes (Other)
  Sender: FDA-Public Use
  Company Number: FK201201651

PATIENT
  Age: 62 Year
  Sex: Female

DRUGS (3)
  1. FUROSEMIDE (MANUFACTURER UNKNOWN) (FUROSEMIDE) (FUROSEMIDE) [Suspect]
     Indication: PRODUCT USED FOR UNKNOWN INDICATION
     Dosage: 40 MG, INGESTED 58 TABLETS, ORAL
     Route: 048
  2. ACETAMINOPHEN [Suspect]
     Indication: PRODUCT USED FOR UNKNOWN INDICATION
     Dosage: INGESTED UNKOWN NUMBER OF TABLETS, ORAL
     Route: 048
  3. CLONIDINE [Suspect]
     Indication: PRODUCT USED FOR UNKNOWN INDICATION
     Dosage: 0.2 MG, INGESTED 42 TABLETS, ORAL
     Route: 048

REACTIONS (7)
  - BLOOD CREATINE PHOSPHOKINASE INCREASED [None]
  - HYPOTHERMIA [None]
  - BRADYCARDIA [None]
  - SUICIDE ATTEMPT [None]
  - ANALGESIC DRUG LEVEL INCREASED [None]
  - HYPOTENSION [None]
  - MULTIPLE DRUG OVERDOSE INTENTIONAL [None]
